FAERS Safety Report 11654637 (Version 1)
Quarter: 2015Q4

REPORT INFORMATION
  Report Type: Spontaneous
  Country: US (occurrence: None)
  Receive Date: 20151022
  Receipt Date: 20151022
  Transmission Date: 20160304
  Serious: Yes (Life-Threatening, Hospitalization)
  Sender: FDA-Public Use
  Company Number: None

PATIENT
  Age: 61 Year
  Sex: Male
  Weight: 84.82 kg

DRUGS (1)
  1. XARELTO [Suspect]
     Active Substance: RIVAROXABAN
     Indication: ATRIAL FIBRILLATION

REACTIONS (10)
  - Renal failure [None]
  - Dyspnoea [None]
  - Nausea [None]
  - Food intolerance [None]
  - Cardiac arrest [None]
  - Vomiting [None]
  - Shock [None]
  - Hepatic failure [None]
  - Cholecystitis [None]
  - Cerebral haemorrhage [None]

NARRATIVE: CASE EVENT DATE: 20150919
